FAERS Safety Report 8987297 (Version 6)
Quarter: 2013Q2

REPORT INFORMATION
  Report Type: Report from Study
  Country: FR (occurrence: FR)
  Receive Date: 20121227
  Receipt Date: 20130408
  Transmission Date: 20140414
  Serious: Yes (Hospitalization, Other)
  Sender: FDA-Public Use
  Company Number: FR-CELGENEUS-056-21880-12121933

PATIENT
  Age: 43 Year
  Sex: Male
  Weight: 56 kg

DRUGS (5)
  1. REVLIMID [Suspect]
     Indication: KAPOSI^S SARCOMA
     Dosage: 25 MILLIGRAM
     Route: 048
     Dates: start: 20120521, end: 20121125
  2. KIVEXA [Concomitant]
     Indication: HIV INFECTION
     Dosage: 600MG/300MG
     Route: 048
     Dates: start: 20090824
  3. REYATAZ [Concomitant]
     Indication: HIV INFECTION
     Dosage: 300 MILLIGRAM
     Route: 065
     Dates: start: 20090824
  4. NORVIR [Concomitant]
     Indication: HIV INFECTION
     Dosage: 100 MILLIGRAM
     Route: 048
     Dates: start: 20090824
  5. ASPIRINE [Concomitant]
     Indication: THROMBOSIS PROPHYLAXIS
     Dosage: 75 MILLIGRAM
     Route: 065
     Dates: start: 20120521

REACTIONS (2)
  - Nuclear magnetic resonance imaging abnormal [Not Recovered/Not Resolved]
  - Sciatica [Recovered/Resolved]
